FAERS Safety Report 5082439-7 (Version None)
Quarter: 2006Q3

REPORT INFORMATION
  Report Type: 
  Country: None (occurrence: None)
  Receive Date: 20060814
  Receipt Date: 20060801
  Transmission Date: 20061208
  Serious: Yes (Other)
  Sender: FDA-Public Use
  Company Number: 2006094986

PATIENT
  Age: 62 Year
  Sex: Male
  Weight: 140.6151 kg

DRUGS (5)
  1. XANAX [Suspect]
     Indication: ANXIETY
     Dosage: 8 MG (2 MG,4 IN 1 D)
  2. OXYCODONE HCL [Concomitant]
  3. ALL OTHER THERAPEUTIC PRODUCTS [Concomitant]
  4. ANTITHROMBOTIC AGENTS [Concomitant]
  5. ZYPREXA [Concomitant]

REACTIONS (6)
  - CONVULSION [None]
  - DYSARTHRIA [None]
  - FACIAL PALSY [None]
  - FEELING ABNORMAL [None]
  - HEADACHE [None]
  - MEMORY IMPAIRMENT [None]
